FAERS Safety Report 15388822 (Version 2)
Quarter: 2018Q4

REPORT INFORMATION
  Report Type: Spontaneous
  Country: US (occurrence: US)
  Receive Date: 20180916
  Receipt Date: 20181001
  Transmission Date: 20190204
  Serious: No
  Sender: FDA-Public Use
  Company Number: US-JNJFOC-20180817374

PATIENT
  Age: 13 Year
  Sex: Male

DRUGS (2)
  1. MOTRIN JUNIOR STRENGTH [Suspect]
     Active Substance: IBUPROFEN
     Indication: PRODUCT USED FOR UNKNOWN INDICATION
     Route: 048
  2. MOTRIN JUNIOR STRENGTH [Suspect]
     Active Substance: IBUPROFEN
     Route: 048

REACTIONS (1)
  - Retching [Unknown]
